FAERS Safety Report 6581454-1 (Version None)
Quarter: 2010Q1

REPORT INFORMATION
  Report Type: 
  Country: None (occurrence: None)
  Receive Date: 20100215
  Receipt Date: 20100210
  Transmission Date: 20100710
  Serious: Yes (Hospitalization)
  Sender: FDA-Public Use
  Company Number: A0844056A

PATIENT
  Sex: Male
  Weight: 61 kg

DRUGS (1)
  1. PAZOPANIB [Suspect]
     Dosage: 800MG PER DAY
     Route: 048
     Dates: start: 20091013, end: 20091208

REACTIONS (3)
  - ANAEMIA [None]
  - DIZZINESS [None]
  - THROMBOCYTOPENIA [None]
